FAERS Safety Report 8087158-0 (Version None)
Quarter: 2012Q1

REPORT INFORMATION
  Report Type: 
  Country: None (occurrence: None)
  Receive Date: 20120128
  Receipt Date: 20110414
  Transmission Date: 20120608
  Serious: No
  Sender: FDA-Public Use
  Company Number: US-ABBOTT-11P-163-0719351-00

PATIENT
  Age: 23 Year
  Sex: Male

DRUGS (2)
  1. NAPROXEN (ALEVE) [Concomitant]
     Indication: PRODUCT USED FOR UNKNOWN INDICATION
     Dosage: 220MG (2 IN THE MORNING)
  2. HUMIRA [Suspect]
     Indication: PSORIATIC ARTHROPATHY
     Dates: start: 20110303

REACTIONS (2)
  - TREMOR [None]
  - INJECTION SITE ERYTHEMA [None]
